FAERS Safety Report 17311730 (Version 1)
Quarter: 2020Q1

REPORT INFORMATION
  Report Type: Report from Study
  Country: CA (occurrence: CA)
  Receive Date: 20200123
  Receipt Date: 20200123
  Transmission Date: 20200409
  Serious: Yes (Other)
  Sender: FDA-Public Use
  Company Number: CA-HLSUS-2020-CA-000067

PATIENT
  Sex: Female
  Weight: 68.2 kg

DRUGS (10)
  1. RIVASTIGMINE. [Concomitant]
     Active Substance: RIVASTIGMINE
     Route: 048
  2. ACETAMINOPHEN. [Concomitant]
     Active Substance: ACETAMINOPHEN
     Dosage: IF REQUIRED
     Route: 048
  3. SENNOSIDES. [Concomitant]
     Active Substance: SENNOSIDES
     Dosage: AT BEDTIME
     Route: 048
  4. FLEET ENEMA [Concomitant]
     Active Substance: SODIUM PHOSPHATE, DIBASIC\SODIUM PHOSPHATE, MONOBASIC
     Dosage: IF REQUIRED
     Route: 054
  5. ACETAMINOPHEN. [Concomitant]
     Active Substance: ACETAMINOPHEN
     Dosage: 1 EVERY 4-6 HOURS AS REQUIRED
     Route: 054
  6. ESCITALOPRAM [Concomitant]
     Active Substance: ESCITALOPRAM OXALATE
     Route: 048
  7. CLOZARIL [Suspect]
     Active Substance: CLOZAPINE
     Route: 048
     Dates: start: 20120119, end: 20200116
  8. LACTULOSE. [Concomitant]
     Active Substance: LACTULOSE
     Dosage: AT BEDTIME IF NO BOWEL MOVEMENT BY THE END OF DAY 2
     Route: 048
  9. DULCOLAX NOS [Concomitant]
     Active Substance: BISACODYL OR DOCUSATE SODIUM
     Dosage: 1 AT 06:00 IF NO BOWEL MOVEMENT ON DAY 3
     Route: 054
  10. CALCIUM [Concomitant]
     Active Substance: CALCIUM
     Route: 048

REACTIONS (8)
  - Transient ischaemic attack [Unknown]
  - Depression [Unknown]
  - Osteoarthritis [Unknown]
  - Arrhythmia [Unknown]
  - Hypertension [Unknown]
  - Parkinson^s disease [Unknown]
  - Urinary incontinence [Unknown]
  - Vascular dementia [Unknown]
